FAERS Safety Report 19092476 (Version 1)
Quarter: 2021Q2

REPORT INFORMATION
  Report Type: Spontaneous
  Country: US (occurrence: US)
  Receive Date: 20210405
  Receipt Date: 20210405
  Transmission Date: 20210717
  Serious: Yes (Death, Hospitalization)
  Sender: FDA-Public Use
  Company Number: US-JNJFOC-20210350273

PATIENT
  Age: 85 Year
  Sex: Female

DRUGS (2)
  1. OPSUMIT [Suspect]
     Active Substance: MACITENTAN
     Indication: PULMONARY ARTERIAL HYPERTENSION
     Route: 048
     Dates: start: 202102
  2. SILDENAFIL. [Concomitant]
     Active Substance: SILDENAFIL
     Dates: start: 2020

REACTIONS (5)
  - Dyspnoea [Unknown]
  - Hospitalisation [Unknown]
  - Incorrect product administration duration [Unknown]
  - Death [Fatal]
  - Oedema [Unknown]

NARRATIVE: CASE EVENT DATE: 2021
